FAERS Safety Report 9752552 (Version 1)
Quarter: 2013Q4

REPORT INFORMATION
  Report Type: Spontaneous
  Country: FR (occurrence: FR)
  Receive Date: 20131213
  Receipt Date: 20131213
  Transmission Date: 20140711
  Serious: Yes (Other)
  Sender: FDA-Public Use
  Company Number: FR-JNJFOC-20131205413

PATIENT
  Age: 45 Year
  Sex: Male

DRUGS (7)
  1. REMICADE [Suspect]
     Indication: SPONDYLOARTHROPATHY
     Route: 042
     Dates: start: 20121009, end: 20130614
  2. REMICADE [Suspect]
     Indication: SPONDYLOARTHROPATHY
     Route: 042
     Dates: start: 20130905, end: 20130920
  3. GLUCOPHAGE [Suspect]
     Indication: TYPE 2 DIABETES MELLITUS
     Route: 048
     Dates: end: 20130614
  4. STAGID [Concomitant]
     Indication: DIABETES MELLITUS INADEQUATE CONTROL
     Route: 065
     Dates: start: 201308
  5. CRESTOR [Concomitant]
     Route: 065
     Dates: start: 201303
  6. LYRICA [Concomitant]
     Route: 065
  7. DIAMICRON [Concomitant]
     Route: 065
     Dates: end: 201308

REACTIONS (5)
  - Myalgia [Recovering/Resolving]
  - Paraesthesia [Recovering/Resolving]
  - Infusion related reaction [Unknown]
  - Pruritus [Unknown]
  - Burning sensation [Unknown]
